FAERS Safety Report 10417754 (Version 1)
Quarter: 2014Q2

REPORT INFORMATION
  Report Type: Spontaneous
  Country: US (occurrence: None)
  Receive Date: 20140609
  Receipt Date: 20140609
  Transmission Date: 20141212
  Serious: No
  Sender: FDA-Public Use
  Company Number: 2014TUS001284

PATIENT
  Age: 34 Year
  Sex: Female

DRUGS (1)
  1. BRINTELLIX [Suspect]
     Indication: MAJOR DEPRESSION
     Dosage: ONE TABLET DAILY
     Route: 048
     Dates: start: 20140214, end: 20140217

REACTIONS (1)
  - Pruritus generalised [None]
